FAERS Safety Report 5470373-X (Version None)
Quarter: 2007Q3

REPORT INFORMATION
  Report Type: 
  Country: None (occurrence: None)
  Receive Date: 20070820
  Receipt Date: 20070627
  Transmission Date: 20080115
  Serious: No
  Sender: FDA-Public Use
  Company Number: WAES 0706USA05137

PATIENT
  Age: 73 Year
  Sex: Male

DRUGS (10)
  1. JANUVIA [Suspect]
     Indication: DIABETES MELLITUS
     Dosage: 100 MG/DAILY/PO, QOD/PO, DAILY/PO
     Route: 048
     Dates: start: 20070601, end: 20070601
  2. JANUVIA [Suspect]
     Indication: DIABETES MELLITUS
     Dosage: 100 MG/DAILY/PO, QOD/PO, DAILY/PO
     Route: 048
     Dates: end: 20070601
  3. JANUVIA [Suspect]
     Indication: DIABETES MELLITUS
     Dosage: 100 MG/DAILY/PO, QOD/PO, DAILY/PO
     Route: 048
     Dates: start: 20070601
  4. AVANDIA [Concomitant]
  5. LASIX [Concomitant]
  6. CALCITRIOL [Concomitant]
  7. DIURETIC (UNSPECIFIED) [Concomitant]
  8. IRON (UNSPECIFIED) [Concomitant]
  9. LEVOTHYROXINE SODIUM [Concomitant]
  10. LISINOPRIL [Concomitant]

REACTIONS (3)
  - BLOOD GLUCOSE DECREASED [None]
  - INAPPROPRIATE SCHEDULE OF DRUG ADMINISTRATION [None]
  - WRONG TECHNIQUE IN DRUG USAGE PROCESS [None]
